FAERS Safety Report 7500707-3 (Version None)
Quarter: 2011Q2

REPORT INFORMATION
  Report Type: 
  Country: None (occurrence: None)
  Receive Date: 20110524
  Receipt Date: 20110516
  Transmission Date: 20111010
  Serious: Yes (Disabling)
  Sender: FDA-Public Use
  Company Number: FR-MERCK-1105FRA00064

PATIENT
  Age: 64 Year
  Sex: Male

DRUGS (2)
  1. PRIMAXIN [Suspect]
     Indication: SKIN ULCER
     Route: 042
     Dates: start: 20101127, end: 20110112
  2. FUROSEMIDE [Suspect]
     Route: 048

REACTIONS (1)
  - DEAFNESS NEUROSENSORY [None]
